FAERS Safety Report 7799328-7 (Version None)
Quarter: 2011Q4

REPORT INFORMATION
  Report Type: 
  Country: None (occurrence: None)
  Receive Date: 20111006
  Receipt Date: 20110927
  Transmission Date: 20120403
  Serious: Yes (Hospitalization)
  Sender: FDA-Public Use
  Company Number: PHHY2011FR86337

PATIENT
  Sex: Male
  Weight: 83 kg

DRUGS (7)
  1. ASPIRIN [Concomitant]
  2. PERINDOPRIL ERBUMINE [Concomitant]
  3. RISPERDAL [Suspect]
     Dosage: UNK
     Dates: start: 20110909
  4. NEXIUM [Concomitant]
  5. CLINDAMYCIN HCL [Suspect]
     Dosage: UNK
     Route: 048
     Dates: start: 20110826
  6. VANCOMYCIN HCL [Suspect]
     Indication: INFECTION
     Dosage: UNK
     Dates: start: 20110819, end: 20110913
  7. CORDARONE [Concomitant]

REACTIONS (5)
  - CYTOLYTIC HEPATITIS [None]
  - EOSINOPHILIA [None]
  - ANGIOEDEMA [None]
  - PRURITUS [None]
  - SKIN PLAQUE [None]
